FAERS Safety Report 20301634 (Version 1)
Quarter: 2022Q1

REPORT INFORMATION
  Report Type: Report from Study
  Country: IT (occurrence: IT)
  Receive Date: 20220105
  Receipt Date: 20220105
  Transmission Date: 20220423
  Serious: Yes (Other)
  Sender: FDA-Public Use
  Company Number: None

PATIENT
  Age: 56 Year
  Sex: Female
  Weight: 60 kg

DRUGS (2)
  1. HALAVEN [Suspect]
     Active Substance: ERIBULIN MESYLATE
     Indication: Metaplastic breast carcinoma
     Route: 042
     Dates: start: 20200924, end: 2021
  2. HERZUMA [Concomitant]
     Active Substance: TRASTUZUMAB-PKRB
     Indication: Metaplastic breast carcinoma
     Dates: start: 20200924

REACTIONS (3)
  - Neurological symptom [Unknown]
  - Gait disturbance [Unknown]
  - Paraesthesia [Unknown]

NARRATIVE: CASE EVENT DATE: 20211216
